FAERS Safety Report 11688539 (Version 1)
Quarter: 2015Q4

REPORT INFORMATION
  Report Type: Spontaneous
  Country: US (occurrence: US)
  Receive Date: 20151101
  Receipt Date: 20151101
  Transmission Date: 20160304
  Serious: Yes (Hospitalization, Other)
  Sender: FDA-Public Use
  Company Number: US-ZYDUS-009333

PATIENT
  Age: 30 Year
  Sex: Female

DRUGS (1)
  1. BUPROPION/BUPROPION HYDROCHLORIDE [Suspect]
     Active Substance: BUPROPION HYDROCHLORIDE
     Indication: PRODUCT USED FOR UNKNOWN INDICATION
     Dosage: HALF OF A BOTTLE OF EXTENDED RELEASE BUPROPION.
     Route: 048

REACTIONS (6)
  - Generalised tonic-clonic seizure [Unknown]
  - Metabolic acidosis [Recovered/Resolved]
  - Mental status changes [Unknown]
  - Overdose [Unknown]
  - Hypotension [Unknown]
  - Tachycardia [Unknown]
